FAERS Safety Report 6768916-9 (Version None)
Quarter: 2010Q2

REPORT INFORMATION
  Report Type: 
  Country: None (occurrence: None)
  Receive Date: 20100614
  Receipt Date: 20100610
  Transmission Date: 20101027
  Serious: Yes (Life-Threatening, Hospitalization, Other)
  Sender: FDA-Public Use
  Company Number: FR-BRISTOL-MYERS SQUIBB COMPANY-15094881

PATIENT
  Age: 44 Year
  Sex: Male
  Weight: 144 kg

DRUGS (8)
  1. SPRYCEL [Suspect]
     Indication: CHRONIC MYELOID LEUKAEMIA
     Dosage: 4AUG09;09FEB09:100 MG 25FEB10;3MAR09:80MG 4MAR10:100 MG
     Route: 048
     Dates: start: 20090804
  2. PLAVIX [Concomitant]
     Indication: MYOCARDIAL INFARCTION
     Route: 048
     Dates: start: 20070101
  3. TAHOR [Concomitant]
     Indication: HYPERTENSION
     Route: 048
  4. AMLOR [Concomitant]
     Indication: HYPERTENSION
     Route: 048
  5. TERCIAN [Concomitant]
     Indication: DEPRESSION
     Route: 048
     Dates: start: 20100310, end: 20100315
  6. TRANXENE [Concomitant]
     Dosage: 1DF-5 UNTI NOT SPECIFIED
     Route: 048
  7. ATENOLOL [Concomitant]
  8. ZOLPIDEM [Concomitant]

REACTIONS (3)
  - DEPRESSION [None]
  - OVERDOSE [None]
  - SUICIDE ATTEMPT [None]
